FAERS Safety Report 18596850 (Version 1)
Quarter: 2020Q4

REPORT INFORMATION
  Report Type: Spontaneous
  Country: US (occurrence: US)
  Receive Date: 20201209
  Receipt Date: 20201209
  Transmission Date: 20210114
  Serious: Yes (Hospitalization)
  Sender: FDA-Public Use
  Company Number: US-ELI_LILLY_AND_COMPANY-US202012000539

PATIENT
  Age: 100 Year
  Sex: Male

DRUGS (4)
  1. METOPROLOL. [Concomitant]
     Active Substance: METOPROLOL
     Indication: HYPERTENSION
     Dosage: 25 MG, DAILY
     Route: 065
  2. BAMLANIVIMAB 700MG [Suspect]
     Active Substance: BAMLANIVIMAB
     Indication: COVID-19
     Dosage: 700 MG, UNKNOWN
     Route: 042
     Dates: start: 20201128, end: 20201128
  3. ASPIRIN (E.C.) [Concomitant]
     Active Substance: ASPIRIN
     Indication: PRODUCT USED FOR UNKNOWN INDICATION
     Dosage: 81 MG, DAILY
     Route: 065
  4. LOVASTATIN. [Concomitant]
     Active Substance: LOVASTATIN
     Indication: HYPERLIPIDAEMIA
     Dosage: 40 MG, DAILY
     Route: 065

REACTIONS (5)
  - Confusional state [Unknown]
  - Troponin increased [Unknown]
  - Body temperature increased [Unknown]
  - Oxygen saturation decreased [Unknown]
  - Agitation [Unknown]

NARRATIVE: CASE EVENT DATE: 20201128
